FAERS Safety Report 12796968 (Version 3)
Quarter: 2016Q4

REPORT INFORMATION
  Report Type: Spontaneous
  Country: US (occurrence: US)
  Receive Date: 20160929
  Receipt Date: 20161114
  Transmission Date: 20170207
  Serious: Yes (Hospitalization, Other)
  Sender: FDA-Public Use
  Company Number: US-ACTELION-A-NJ2016-142641

PATIENT
  Age: 52 Year
  Sex: Female

DRUGS (10)
  1. FUROSEMIDE. [Concomitant]
     Active Substance: FUROSEMIDE
     Dosage: 40 MG, QPM
  2. OMEPRAZOLE. [Concomitant]
     Active Substance: OMEPRAZOLE
     Dosage: 20 MG, BID
  3. FUROSEMIDE. [Concomitant]
     Active Substance: FUROSEMIDE
     Dosage: 80 MG, QAM
  4. URSODIOL. [Concomitant]
     Active Substance: URSODIOL
     Dosage: 250 MG, BID
  5. TYVASO [Concomitant]
     Active Substance: TREPROSTINIL
     Dosage: 1.74/2.9, 9 PUFFS QID
  6. SILDENAFIL. [Concomitant]
     Active Substance: SILDENAFIL
     Dosage: 40 MG, TID
  7. OPSUMIT [Suspect]
     Active Substance: MACITENTAN
     Indication: PULMONARY ARTERIAL HYPERTENSION
     Dosage: 10 MG, QD
     Route: 048
     Dates: start: 20160730, end: 20160807
  8. SPIRONOLACTONE. [Concomitant]
     Active Substance: SPIRONOLACTONE
     Dosage: 50 MG, BID
  9. MOMETASONE FUROATE. [Concomitant]
     Active Substance: MOMETASONE FUROATE
     Dosage: 2 PUFFS, BID
  10. OPSUMIT [Suspect]
     Active Substance: MACITENTAN
     Dosage: 10 UNK, UNK
     Route: 048
     Dates: start: 20160816

REACTIONS (8)
  - Enterocolitis viral [Recovered/Resolved]
  - Abdominal pain upper [Recovered/Resolved]
  - Nausea [Recovered/Resolved]
  - Chills [Recovered/Resolved]
  - Diarrhoea [Recovered/Resolved]
  - Blood bilirubin increased [Unknown]
  - Abdominal distension [Recovered/Resolved]
  - Pyrexia [Recovered/Resolved]

NARRATIVE: CASE EVENT DATE: 20160805
